FAERS Safety Report 22389745 (Version 12)
Quarter: 2024Q2

REPORT INFORMATION
  Report Type: Report from Study
  Country: CA (occurrence: CA)
  Receive Date: 20230531
  Receipt Date: 20240510
  Transmission Date: 20240715
  Serious: Yes (Hospitalization, Other)
  Sender: FDA-Public Use
  Company Number: CA-JNJFOC-20230104091

PATIENT
  Age: 31 Year
  Sex: Male
  Weight: 83 kg

DRUGS (5)
  1. REMICADE [Suspect]
     Active Substance: INFLIXIMAB
     Indication: Colitis ulcerative
     Route: 041
     Dates: start: 20150820
  2. REMICADE [Suspect]
     Active Substance: INFLIXIMAB
     Route: 041
     Dates: start: 20230217
  3. REMICADE [Suspect]
     Active Substance: INFLIXIMAB
     Dosage: DOSE ROUNDED-UP TO COMPLETE VIAL?EXPIRY DATE: 30-AUG-2025,
     Route: 041
     Dates: start: 2023
  4. REMICADE [Suspect]
     Active Substance: INFLIXIMAB
     Dosage: EXPIRY DATE WAS ALSO REPORTED AS 31-AUG-2025. ON 07-JUN-2023, THE PATIENT RECEIVED 58TH INFLIXIMAB,
     Route: 041
     Dates: start: 2023
  5. REMICADE [Suspect]
     Active Substance: INFLIXIMAB
     Route: 041
     Dates: start: 20150820

REACTIONS (28)
  - Anal abscess [Unknown]
  - Infected fistula [Not Recovered/Not Resolved]
  - Cellulitis [Recovered/Resolved]
  - Haematochezia [Recovering/Resolving]
  - Spinal cord neoplasm [Not Recovered/Not Resolved]
  - Spinal fracture [Not Recovered/Not Resolved]
  - Transfusion [Unknown]
  - Sexually transmitted disease [Recovered/Resolved]
  - Abdominal distension [Recovered/Resolved]
  - Flatulence [Recovered/Resolved]
  - General physical health deterioration [Recovered/Resolved]
  - Frequent bowel movements [Recovered/Resolved]
  - Anal fistula [Recovered/Resolved]
  - Mucous stools [Recovering/Resolving]
  - Mouth ulceration [Not Recovered/Not Resolved]
  - Oropharyngeal pain [Recovered/Resolved]
  - Nasal dryness [Unknown]
  - Epistaxis [Unknown]
  - Decreased appetite [Unknown]
  - Vomiting [Recovered/Resolved]
  - Diarrhoea infectious [Recovered/Resolved]
  - Myalgia [Unknown]
  - Hyperhidrosis [Recovered/Resolved]
  - Drug level below therapeutic [Not Recovered/Not Resolved]
  - Pyrexia [Not Recovered/Not Resolved]
  - Lymphadenopathy [Unknown]
  - Incorrect drug administration rate [Unknown]
  - Inappropriate schedule of product administration [Unknown]

NARRATIVE: CASE EVENT DATE: 20230101
